FAERS Safety Report 14655731 (Version 3)
Quarter: 2018Q2

REPORT INFORMATION
  Report Type: Spontaneous
  Country: FR (occurrence: FR)
  Receive Date: 20180319
  Receipt Date: 20180418
  Transmission Date: 20180711
  Serious: Yes (Other)
  Sender: FDA-Public Use
  Company Number: FR-TEVA-2018-FR-869364

PATIENT
  Sex: Female

DRUGS (4)
  1. ESTREVA 0.1 % [Suspect]
     Active Substance: ESTRADIOL
     Indication: HORMONE REPLACEMENT THERAPY
     Dosage: 1 DOSAGE FORMS DAILY;
  2. METEOSPASMYL (ALVERINE CITRATE\DIMETHICONE) [Concomitant]
     Active Substance: ALVERINE CITRATE\DIMETHICONE
  3. ESTREVA 0.1 % [Suspect]
     Active Substance: ESTRADIOL
     Dosage: 1 DOSAGE FORMS DAILY;
     Dates: start: 201802
  4. UTROGESTAN [Concomitant]
     Active Substance: PROGESTERONE
     Indication: HORMONE REPLACEMENT THERAPY

REACTIONS (2)
  - Vaginal haemorrhage [Unknown]
  - Blood urine present [Not Recovered/Not Resolved]

NARRATIVE: CASE EVENT DATE: 2018
